FAERS Safety Report 15640542 (Version 1)
Quarter: 2018Q4

REPORT INFORMATION
  Report Type: Report from Study
  Country: US (occurrence: US)
  Receive Date: 20181120
  Receipt Date: 20181120
  Transmission Date: 20190205
  Serious: Yes (Hospitalization, Other)
  Sender: FDA-Public Use
  Company Number: US-JNJFOC-20181111358

PATIENT
  Age: 36 Year
  Sex: Female

DRUGS (1)
  1. FRAGRANCE FREE MINERAL SUNSCREEN STICK SPF 50 F13606-092 (ZINC OXIDE) [Suspect]
     Active Substance: ZINC OXIDE
     Indication: PRODUCT USED FOR UNKNOWN INDICATION
     Dosage: APPLIED IT ONCE TO HER ARMS, LEGS, FACE AND CHEST, CELL 632
     Route: 061
     Dates: start: 20181028

REACTIONS (6)
  - Dyspnoea [Recovered/Resolved]
  - Application site swelling [Recovered/Resolved]
  - Eye swelling [Recovered/Resolved]
  - Application site rash [Recovered/Resolved]
  - Throat tightness [Recovered/Resolved]
  - Application site reaction [Recovered/Resolved]

NARRATIVE: CASE EVENT DATE: 20181028
